FAERS Safety Report 13583002 (Version 7)
Quarter: 2019Q1

REPORT INFORMATION
  Report Type: Report from Study
  Country: US (occurrence: US)
  Receive Date: 20170525
  Receipt Date: 20190313
  Transmission Date: 20190417
  Serious: Yes (Death, Hospitalization)
  Sender: FDA-Public Use
  Company Number: US-ACTELION-A-NJ2017-154381

PATIENT
  Age: 78 Year
  Sex: Male
  Weight: 83.9 kg

DRUGS (3)
  1. WARFARIN [Concomitant]
     Active Substance: WARFARIN
  2. SILDENAFIL CITRATE. [Concomitant]
     Active Substance: SILDENAFIL CITRATE
  3. OPSUMIT [Suspect]
     Active Substance: MACITENTAN
     Indication: PULMONARY ARTERIAL HYPERTENSION
     Dosage: 10 MG, QD
     Route: 048

REACTIONS (6)
  - Thyroidectomy [Unknown]
  - Blood creatine increased [Unknown]
  - Dyspnoea [Unknown]
  - Pulmonary hypertension [Recovering/Resolving]
  - Death [Fatal]
  - Fluid retention [Unknown]

NARRATIVE: CASE EVENT DATE: 20190228
